FAERS Safety Report 20160359 (Version 1)
Quarter: 2021Q4

REPORT INFORMATION
  Report Type: Spontaneous
  Country: DE (occurrence: DE)
  Receive Date: 20211208
  Receipt Date: 20211208
  Transmission Date: 20220304
  Serious: Yes (Other)
  Sender: FDA-Public Use
  Company Number: DE-VIIV HEALTHCARE LIMITED-DE2021EME247891

PATIENT
  Sex: Female

DRUGS (2)
  1. VOCABRIA [Suspect]
     Active Substance: CABOTEGRAVIR SODIUM
     Indication: Antiretroviral therapy
     Dosage: UNK
  2. RILPIVIRINE [Suspect]
     Active Substance: RILPIVIRINE
     Indication: Antiretroviral therapy
     Dosage: UNK

REACTIONS (4)
  - Pathogen resistance [Unknown]
  - Virologic failure [Unknown]
  - Drug level abnormal [Unknown]
  - Treatment failure [Unknown]
